FAERS Safety Report 20153597 (Version 1)
Quarter: 2021Q4

REPORT INFORMATION
  Report Type: Spontaneous
  Country: GB (occurrence: GB)
  Receive Date: 20211206
  Receipt Date: 20211206
  Transmission Date: 20220304
  Serious: Yes (Hospitalization, Other)
  Sender: FDA-Public Use
  Company Number: None

PATIENT
  Age: 66 Year
  Sex: Male
  Weight: 70 kg

DRUGS (1)
  1. JARDIANCE [Suspect]
     Active Substance: EMPAGLIFLOZIN
     Indication: Diabetes mellitus
     Route: 048
     Dates: end: 20211129

REACTIONS (5)
  - Diabetic ketoacidosis [Recovered/Resolved]
  - Sepsis [Unknown]
  - Gangrene [Unknown]
  - Hyperosmolar state [Unknown]
  - Dehydration [Unknown]

NARRATIVE: CASE EVENT DATE: 20211101
